FAERS Safety Report 7825142-X (Version None)
Quarter: 2011Q4

REPORT INFORMATION
  Report Type: 
  Country: None (occurrence: None)
  Receive Date: 20111019
  Receipt Date: 20111010
  Transmission Date: 20120403
  Serious: Yes (Hospitalization)
  Sender: FDA-Public Use
  Company Number: US-JNJFOC-20110911761

PATIENT
  Sex: Male
  Weight: 30.4 kg

DRUGS (5)
  1. PREDNISONE [Concomitant]
  2. REMICADE [Suspect]
     Route: 042
     Dates: start: 20110606
  3. METHOTREXATE [Concomitant]
  4. METRONIDAZOLE [Concomitant]
  5. REMICADE [Suspect]
     Indication: CROHN'S DISEASE
     Route: 042
     Dates: start: 20110822

REACTIONS (1)
  - CROHN'S DISEASE [None]
